FAERS Safety Report 8246558-6 (Version None)
Quarter: 2012Q1

REPORT INFORMATION
  Report Type: 
  Country: None (occurrence: None)
  Receive Date: 20120316
  Receipt Date: 20090519
  Transmission Date: 20120608
  Serious: Yes (Other)
  Sender: FDA-Public Use
  Company Number: PHEH2009US05098

PATIENT
  Age: 82 Year
  Sex: Female

DRUGS (3)
  1. BETA BLOCKING AGENTS (NO INGREDIENTS/SUBSTANCES) [Concomitant]
  2. CLONIDINE [Concomitant]
  3. TEKTURNA [Suspect]
     Dosage: ORAL
     Route: 048

REACTIONS (1)
  - BLOOD POTASSIUM INCREASED [None]
